FAERS Safety Report 23318136 (Version 1)
Quarter: 2023Q4

REPORT INFORMATION
  Report Type: Spontaneous
  Country: GB (occurrence: None)
  Receive Date: 20231220
  Receipt Date: 20231220
  Transmission Date: 20240109
  Serious: Yes (Other)
  Sender: FDA-Public Use
  Company Number: GB-ROCHE-3412563

PATIENT
  Sex: Female

DRUGS (2)
  1. TOCILIZUMAB [Suspect]
     Active Substance: TOCILIZUMAB
     Indication: Uveitis
     Route: 058
     Dates: start: 202309
  2. MECLOFENAMATE SODIUM [Concomitant]
     Active Substance: MECLOFENAMATE SODIUM

REACTIONS (2)
  - Off label use [Unknown]
  - Eye disorder [Unknown]
